FAERS Safety Report 24202237 (Version 2)
Quarter: 2024Q3

REPORT INFORMATION
  Report Type: Spontaneous
  Country: JP (occurrence: JP)
  Receive Date: 20240812
  Receipt Date: 20240917
  Transmission Date: 20241017
  Serious: Yes (Other)
  Sender: TAKEDA
  Company Number: JP-TAKEDA-2024TJP011857

PATIENT
  Age: 5 Decade
  Sex: Female

DRUGS (1)
  1. ALUNBRIG [Suspect]
     Active Substance: BRIGATINIB
     Indication: Non-small cell lung cancer
     Dosage: 180 MILLIGRAM, QD
     Route: 048
     Dates: start: 20230510, end: 20240808

REACTIONS (3)
  - Non-small cell lung cancer [Unknown]
  - Metastases to bone [Unknown]
  - Lymphoma [Unknown]

NARRATIVE: CASE EVENT DATE: 20240808
